FAERS Safety Report 5652741-6 (Version None)
Quarter: 2008Q1

REPORT INFORMATION
  Report Type: 
  Country: None (occurrence: None)
  Receive Date: 20080305
  Receipt Date: 20080305
  Transmission Date: 20080703
  Serious: Yes (Hospitalization)
  Sender: FDA-Public Use
  Company Number: None

PATIENT
  Sex: Female
  Weight: 94.8 kg

DRUGS (2)
  1. CYCLOPHOSPHAMIDE [Suspect]
     Dosage: 1200 MG
  2. DOXORUBICIN HYDROCHLORIDE [Suspect]
     Dosage: 120 MG

REACTIONS (12)
  - ASTHENIA [None]
  - BEDRIDDEN [None]
  - CULTURE WOUND POSITIVE [None]
  - HEPATIC FAILURE [None]
  - HEPATITIS B [None]
  - HEPATITIS FULMINANT [None]
  - HYPOXIA [None]
  - METABOLIC DISORDER [None]
  - ORAL INTAKE REDUCED [None]
  - PURULENCE [None]
  - RENAL FAILURE [None]
  - STAPHYLOCOCCAL INFECTION [None]
